FAERS Safety Report 4510732-2 (Version None)
Quarter: 2004Q4

REPORT INFORMATION
  Report Type: 
  Country: None (occurrence: None)
  Receive Date: 20041122
  Receipt Date: 20041109
  Transmission Date: 20050328
  Serious: Yes (Hospitalization)
  Sender: FDA-Public Use
  Company Number: 2004084145

PATIENT
  Age: 6 Year
  Sex: Female
  Weight: 26 kg

DRUGS (1)
  1. ZITHROMAX [Suspect]
     Indication: LYME DISEASE
     Dosage: 6.5 ML (6.5 M., 1 IN 1 D), ORAL
     Route: 048
     Dates: start: 20040702, end: 20040706

REACTIONS (8)
  - ARTHRALGIA [None]
  - BACK PAIN [None]
  - DRUG INEFFECTIVE [None]
  - FACIAL PARESIS [None]
  - HEADACHE [None]
  - MENINGITIS [None]
  - SOMNOLENCE [None]
  - VOMITING [None]
